FAERS Safety Report 7538037-6 (Version None)
Quarter: 2011Q2

REPORT INFORMATION
  Report Type: 
  Country: None (occurrence: None)
  Receive Date: 20110609
  Receipt Date: 20110527
  Transmission Date: 20111010
  Serious: Yes (Other)
  Sender: FDA-Public Use
  Company Number: US-ELI_LILLY_AND_COMPANY-US201102003698

PATIENT
  Sex: Female

DRUGS (4)
  1. FORTEO [Suspect]
     Indication: OSTEOPOROSIS
     Dosage: 20 UG, DAILY (1/D)
     Dates: start: 20101214
  2. FORTEO [Suspect]
     Dosage: 20 UG, DAILY (1/D)
  3. FORTEO [Suspect]
     Dosage: 20 UG, QD
  4. CALCIUM CARBONATE [Concomitant]

REACTIONS (7)
  - GAIT DISTURBANCE [None]
  - PAIN [None]
  - WEIGHT BEARING DIFFICULTY [None]
  - URINARY INCONTINENCE [None]
  - PAIN IN EXTREMITY [None]
  - HIP SURGERY [None]
  - CHOLANGITIS [None]
